FAERS Safety Report 4673211-8 (Version None)
Quarter: 2005Q2

REPORT INFORMATION
  Report Type: 
  Country: None (occurrence: None)
  Receive Date: 20050523
  Receipt Date: 20050523
  Transmission Date: 20051028
  Serious: Yes (Other)
  Sender: FDA-Public Use
  Company Number: None

PATIENT
  Age: 73 Year
  Sex: Male
  Weight: 56.2 kg

DRUGS (7)
  1. TERAZOSIN [Suspect]
  2. GABAPENTIN [Concomitant]
  3. TERAZOSIN HCL [Concomitant]
  4. ATORVASTATIN CALCIUM [Concomitant]
  5. DILTIAZEM HCL [Concomitant]
  6. NAPROXEN [Concomitant]
  7. RANITIDINE HCL [Concomitant]

REACTIONS (1)
  - DIZZINESS [None]
